FAERS Safety Report 24072130 (Version 5)
Quarter: 2025Q2

REPORT INFORMATION
  Report Type: Report from Study
  Country: GB (occurrence: GB)
  Receive Date: 20240710
  Receipt Date: 20250407
  Transmission Date: 20250716
  Serious: Yes (Other)
  Sender: TAKEDA
  Company Number: GB-TAKEDA-2024TUS069139

PATIENT
  Sex: Male

DRUGS (2)
  1. VEDOLIZUMAB [Suspect]
     Active Substance: VEDOLIZUMAB
     Indication: Colitis ulcerative
     Dosage: 108 MILLIGRAM, Q2WEEKS
     Dates: start: 202212
  2. VEDOLIZUMAB [Suspect]
     Active Substance: VEDOLIZUMAB

REACTIONS (11)
  - Rectal haemorrhage [Unknown]
  - Drug effect less than expected [Unknown]
  - Frequent bowel movements [Unknown]
  - Malaise [Unknown]
  - Mobility decreased [Unknown]
  - Lethargy [Unknown]
  - Pain [Unknown]
  - Inappropriate schedule of product administration [Unknown]
  - Device defective [Unknown]
  - Incorrect dose administered [Unknown]
  - Device malfunction [Unknown]
